FAERS Safety Report 6989721-4 (Version None)
Quarter: 2010Q3

REPORT INFORMATION
  Report Type: 
  Country: None (occurrence: None)
  Receive Date: 20100916
  Receipt Date: 20100223
  Transmission Date: 20110219
  Serious: Yes (Other)
  Sender: FDA-Public Use
  Company Number: US-PFIZER INC-2010023722

PATIENT
  Sex: Female
  Weight: 46.712 kg

DRUGS (5)
  1. LYRICA [Suspect]
     Indication: MYALGIA
     Dosage: 50 MG, 2X/DAY
     Route: 048
     Dates: start: 20091231, end: 20100222
  2. OXYCODONE [Concomitant]
     Dosage: 10 MG, 4X/DAY
  3. PROPRANOLOL [Concomitant]
     Dosage: 20 MG, 3X/DAY
  4. CYMBALTA [Concomitant]
     Indication: DEPRESSION
     Dosage: 90 MG, 1X/DAY
  5. SKELAXIN [Concomitant]
     Dosage: UNK

REACTIONS (16)
  - ABDOMINAL DISTENSION [None]
  - ASTHENIA [None]
  - BRONCHITIS [None]
  - CONFUSIONAL STATE [None]
  - CONTUSION [None]
  - DIZZINESS [None]
  - DYSPHONIA [None]
  - DYSPNOEA [None]
  - FATIGUE [None]
  - GAIT DISTURBANCE [None]
  - MUSCULAR WEAKNESS [None]
  - OEDEMA PERIPHERAL [None]
  - OROPHARYNGEAL PAIN [None]
  - PHARYNGEAL OEDEMA [None]
  - RASH [None]
  - WEIGHT INCREASED [None]
